FAERS Safety Report 4349878-0 (Version None)
Quarter: 2004Q2

REPORT INFORMATION
  Report Type: 
  Country: None (occurrence: None)
  Receive Date: 20040426
  Receipt Date: 20040413
  Transmission Date: 20050107
  Serious: Yes (Hospitalization)
  Sender: FDA-Public Use
  Company Number: 234384

PATIENT
  Age: 69 Year
  Sex: Male
  Weight: 85.5 kg

DRUGS (8)
  1. PROTAPHANE PENFILL HM (GE) (PROTAPHANE PENFILL HM (GE) [Suspect]
     Indication: DIABETES MELLITUS NON-INSULIN-DEPENDENT
     Dosage: 48 IU, QD, SUBCUTANEOUS
     Route: 058
     Dates: start: 20030709
  2. GLIBENESE [Concomitant]
  3. METFORMIN HCL [Concomitant]
  4. AMLOZEK (AMLODIPINE) [Concomitant]
  5. EFFOX ^MINAPHARM^ (ISOSORBIDE MONONITRATE) [Concomitant]
  6. MOLSIDOMINA (MOLSIDOMINE) [Concomitant]
  7. CALCIUM DOBESILATE (CALCIUM DOBESILATE) [Concomitant]
  8. OMNIC (TAMSULOSIN HYDROCHLORIDE) [Concomitant]

REACTIONS (5)
  - CONVULSION [None]
  - ENURESIS [None]
  - GLYCOSYLATED HAEMOGLOBIN INCREASED [None]
  - HYPOGLYCAEMIA [None]
  - LOSS OF CONSCIOUSNESS [None]
